FAERS Safety Report 18530162 (Version 1)
Quarter: 2020Q4

REPORT INFORMATION
  Report Type: Spontaneous
  Country: CN (occurrence: CN)
  Receive Date: 20201121
  Receipt Date: 20201121
  Transmission Date: 20210114
  Serious: Yes (Hospitalization, Other)
  Sender: FDA-Public Use
  Company Number: CN-LUPIN PHARMACEUTICALS INC.-2020-09088

PATIENT
  Age: 61 Year
  Sex: Male

DRUGS (2)
  1. METHYLPREDNISOLONE. [Suspect]
     Active Substance: METHYLPREDNISOLONE
     Indication: DERMATOMYOSITIS
     Dosage: DOSE: 40MG EVERY MORNING AND 24 MG EVERY NIGHT
     Route: 048
  2. VORICONAZOLE. [Suspect]
     Active Substance: VORICONAZOLE
     Indication: ANTIFUNGAL TREATMENT
     Dosage: 200 MILLIGRAM, BID
     Route: 042

REACTIONS (8)
  - Pneumonia fungal [Recovered/Resolved]
  - Cytomegalovirus infection [Recovered/Resolved]
  - Mucormycosis [Recovered/Resolved]
  - Pneumocystis jirovecii infection [Recovered/Resolved]
  - Hallucination, visual [Unknown]
  - Influenza [Recovered/Resolved]
  - Aspergillus infection [Recovered/Resolved]
  - Confusional state [Unknown]
